FAERS Safety Report 9393101 (Version 2)
Quarter: 2013Q3

REPORT INFORMATION
  Report Type: Spontaneous
  Country: AR (occurrence: AR)
  Receive Date: 20130710
  Receipt Date: 20130718
  Transmission Date: 20140515
  Serious: Yes (Hospitalization)
  Sender: FDA-Public Use
  Company Number: AR-AMGEN-ARGSP2013047873

PATIENT
  Age: 48 Year
  Sex: Male
  Weight: 56 kg

DRUGS (4)
  1. ENBREL [Suspect]
     Indication: RHEUMATOID ARTHRITIS
     Dosage: 50 MG, WEEKLY
     Route: 065
     Dates: start: 20080313
  2. LEFLUNOMIDE [Concomitant]
     Dosage: UNK
  3. MEPREDNISONE [Concomitant]
     Dosage: UNK
  4. PREGABALIN [Concomitant]
     Dosage: UNK

REACTIONS (4)
  - Myalgia [Not Recovered/Not Resolved]
  - Muscular weakness [Not Recovered/Not Resolved]
  - Paresis [Not Recovered/Not Resolved]
  - Oral candidiasis [Recovered/Resolved]
